FAERS Safety Report 19752418 (Version 2)
Quarter: 2021Q3

REPORT INFORMATION
  Report Type: Report from Study
  Country: PA (occurrence: PA)
  Receive Date: 20210826
  Receipt Date: 20210925
  Transmission Date: 20211014
  Serious: Yes (Other)
  Sender: FDA-Public Use
  Company Number: NVSC2021PA192198

PATIENT
  Age: 69 Year
  Sex: Female

DRUGS (3)
  1. VYMADA [Suspect]
     Active Substance: SACUBITRIL\VALSARTAN
     Dosage: 200 MG
     Route: 065
     Dates: start: 20210820
  2. VYMADA [Suspect]
     Active Substance: SACUBITRIL\VALSARTAN
     Dosage: 100 MG (4 MONTHS AGO APPROXIMATELY)
     Route: 065
     Dates: end: 20210819
  3. VYMADA [Suspect]
     Active Substance: SACUBITRIL\VALSARTAN
     Indication: PRODUCT USED FOR UNKNOWN INDICATION
     Dosage: 50 MG (STARTED MORE THAN A YEAR APPROXIMATELY)( STOPPED 4 MONTHS AGO APPROXIMATELY)
     Route: 065

REACTIONS (4)
  - Pain in extremity [Unknown]
  - Condition aggravated [Unknown]
  - Cardiac failure [Unknown]
  - Cardiomegaly [Unknown]
